FAERS Safety Report 24460158 (Version 1)
Quarter: 2024Q4

REPORT INFORMATION
  Report Type: Report from Study
  Country: JP (occurrence: JP)
  Receive Date: 20241018
  Receipt Date: 20241018
  Transmission Date: 20250114
  Serious: No
  Sender: ROCHE
  Company Number: JP-ROCHE-3545165

PATIENT
  Age: 71 Year
  Sex: Female
  Weight: 50.0 kg

DRUGS (3)
  1. RITUXIMAB [Suspect]
     Active Substance: RITUXIMAB
     Indication: Systemic scleroderma
     Dosage: ON 03/APR/2023, 10/APR/2023, 17/APR/2023 SE RECEIVED SUBSEQUENT DOSES OF RITUXIMAB (375 MG/M2).
     Route: 041
     Dates: start: 20230327, end: 20230327
  2. PREDONINE [Suspect]
     Active Substance: PREDNISOLONE
     Indication: Systemic scleroderma
     Route: 048
  3. TACROLIMUS [Suspect]
     Active Substance: TACROLIMUS
     Indication: Systemic scleroderma
     Route: 048

REACTIONS (1)
  - Blood immunoglobulin G decreased [Not Recovered/Not Resolved]

NARRATIVE: CASE EVENT DATE: 20230403
